FAERS Safety Report 12675760 (Version 1)
Quarter: 2016Q3

REPORT INFORMATION
  Report Type: Spontaneous
  Country: US (occurrence: None)
  Receive Date: 20160822
  Receipt Date: 20160822
  Transmission Date: 20161109
  Serious: Yes (Life-Threatening, Hospitalization)
  Sender: FDA-Public Use
  Company Number: None

PATIENT
  Age: 66 Year
  Sex: Female
  Weight: 99 kg

DRUGS (5)
  1. LINAGLIPTIN [Suspect]
     Active Substance: LINAGLIPTIN
  2. VICTOZA [Concomitant]
     Active Substance: LIRAGLUTIDE
  3. LIRAGLUTIDE [Suspect]
     Active Substance: LIRAGLUTIDE
  4. TRADJENTA [Concomitant]
     Active Substance: LINAGLIPTIN
  5. HUMALOG [Concomitant]
     Active Substance: INSULIN LISPRO

REACTIONS (5)
  - Altered state of consciousness [None]
  - Hypoglycaemia [None]
  - Nausea [None]
  - Decreased appetite [None]
  - Hypophagia [None]

NARRATIVE: CASE EVENT DATE: 20160817
